FAERS Safety Report 15603678 (Version 2)
Quarter: 2018Q4

REPORT INFORMATION
  Report Type: Spontaneous
  Country: JP (occurrence: JP)
  Receive Date: 20181109
  Receipt Date: 20181114
  Transmission Date: 20190205
  Serious: Yes (Other)
  Sender: FDA-Public Use
  Company Number: JP-009507513-1810JPN003963J

PATIENT
  Age: 79 Year
  Sex: Female

DRUGS (3)
  1. TEMODAL [Suspect]
     Active Substance: TEMOZOLOMIDE
     Indication: ANAPLASTIC OLIGODENDROGLIOMA
     Dosage: 75 MILLIGRAM/SQ. METER, STARTED AFTER SURGERY
     Route: 048
  2. SULFAMETHOXAZOLE_TRIMETHOPRIM [Concomitant]
     Active Substance: SULFAMETHOXAZOLE\TRIMETHOPRIM
     Indication: PROPHYLAXIS
     Dosage: 80-400MG, QD
     Route: 065
  3. DEXAMETHASONE. [Concomitant]
     Active Substance: DEXAMETHASONE
     Indication: PERITUMOURAL OEDEMA
     Dosage: 2 MILLIGRAM/ DAY
     Route: 065

REACTIONS (3)
  - Immunodeficiency [Unknown]
  - Viral haemorrhagic cystitis [Recovering/Resolving]
  - Cytomegalovirus viraemia [Recovering/Resolving]
